FAERS Safety Report 25252259 (Version 1)
Quarter: 2025Q2

REPORT INFORMATION
  Report Type: Spontaneous
  Country: TW (occurrence: TW)
  Receive Date: 20250429
  Receipt Date: 20250429
  Transmission Date: 20250716
  Serious: Yes (Hospitalization)
  Sender: MYLAN
  Company Number: TW-MYLANLABS-2025M1036050

PATIENT
  Age: 50 Year
  Sex: Female
  Weight: 46.5 kg

DRUGS (17)
  1. LYRICA [Suspect]
     Active Substance: PREGABALIN
     Indication: Pain
     Dosage: 75 MILLIGRAM, TID
     Dates: start: 20250211, end: 20250312
  2. LEFLUNOMIDE [Suspect]
     Active Substance: LEFLUNOMIDE
     Indication: Diffuse large B-cell lymphoma
     Dosage: 20 MILLIGRAM, Q3.5D
     Dates: start: 202501, end: 202502
  3. LEFLUNOMIDE [Suspect]
     Active Substance: LEFLUNOMIDE
     Dosage: 20 MILLIGRAM, Q3.5D
     Dates: start: 20250304
  4. SULFAMETHOXAZOLE\TRIMETHOPRIM [Suspect]
     Active Substance: SULFAMETHOXAZOLE\TRIMETHOPRIM
     Indication: Pneumocystis jirovecii pneumonia
     Dosage: 1 DOSAGE FORM, BID
     Dates: end: 20250308
  5. SULFAMETHOXAZOLE\TRIMETHOPRIM [Suspect]
     Active Substance: SULFAMETHOXAZOLE\TRIMETHOPRIM
     Dosage: 1 DOSAGE FORM, BID
     Dates: start: 20250312
  6. REVLIMID [Suspect]
     Active Substance: LENALIDOMIDE
     Indication: Diffuse large B-cell lymphoma
     Dosage: 25 MILLIGRAM, QD
  7. Scrat [Concomitant]
     Indication: Ulcer
  8. DIFLUCAN [Concomitant]
     Active Substance: FLUCONAZOLE
     Indication: Oral pain
     Dosage: 50 MILLIGRAM, QD
  9. CILOSTAZOL [Concomitant]
     Active Substance: CILOSTAZOL
     Indication: Rheumatoid arthritis
  10. LANSOPRAZOLE [Concomitant]
     Active Substance: LANSOPRAZOLE
     Indication: Ulcer
     Dosage: 30 MILLIGRAM, BID
  11. Sabs [Concomitant]
     Indication: Empyema
     Dosage: 500 MILLIGRAM, QID
  12. Dupin [Concomitant]
     Indication: Anxiety
     Dosage: 5 MILLIGRAM, QD
  13. Mocalm [Concomitant]
     Indication: Anxiety
     Dosage: 1 DOSAGE FORM, QD
  14. SEROQUEL [Concomitant]
     Active Substance: QUETIAPINE FUMARATE
     Indication: Anxiety
     Dosage: 25 MILLIGRAM, BID
  15. PLAQUENIL [Concomitant]
     Active Substance: HYDROXYCHLOROQUINE SULFATE
     Indication: Rheumatoid arthritis
     Dosage: 200 MILLIGRAM, BID
  16. Tatumcef [Concomitant]
     Dosage: 2000 MILLIGRAM, TID
  17. VALTREX [Concomitant]
     Active Substance: VALACYCLOVIR HYDROCHLORIDE
     Indication: Herpes simplex

REACTIONS (2)
  - Drug reaction with eosinophilia and systemic symptoms [Recovered/Resolved]
  - Rash [Recovered/Resolved]

NARRATIVE: CASE EVENT DATE: 20250305
